FAERS Safety Report 6089126-7 (Version None)
Quarter: 2009Q1

REPORT INFORMATION
  Report Type: 
  Country: None (occurrence: None)
  Receive Date: 20090224
  Receipt Date: 20090216
  Transmission Date: 20090719
  Serious: Yes (Hospitalization, Other)
  Sender: FDA-Public Use
  Company Number: US-AMGEN-STX333912

PATIENT
  Sex: Male

DRUGS (18)
  1. SENSIPAR [Suspect]
     Indication: DRUG USE FOR UNKNOWN INDICATION
     Route: 065
  2. PREVACID [Concomitant]
  3. ZOFRAN [Concomitant]
  4. SENOKOT [Concomitant]
  5. ALDACTONE [Concomitant]
  6. AMBIEN [Concomitant]
  7. LOPRESSOR [Concomitant]
  8. AVELOX [Concomitant]
  9. INSULIN [Concomitant]
  10. ISOSORBIDE DINITRATE [Concomitant]
  11. POTASSIUM PHOSPHATES [Concomitant]
  12. LASIX [Concomitant]
  13. HEPARIN [Concomitant]
  14. CALCITONIN [Concomitant]
  15. DIGOXIN [Concomitant]
  16. XOPENEX [Concomitant]
     Route: 050
  17. TYLENOL [Concomitant]
  18. ATROVENT [Concomitant]
     Route: 050

REACTIONS (3)
  - CARDIAC FAILURE CONGESTIVE [None]
  - DYSPNOEA [None]
  - MENTAL STATUS CHANGES [None]
